FAERS Safety Report 5006722-6 (Version None)
Quarter: 2006Q2

REPORT INFORMATION
  Report Type: 
  Country: None (occurrence: None)
  Receive Date: 20060519
  Receipt Date: 20060508
  Transmission Date: 20061013
  Serious: Yes (Death, Hospitalization, Other)
  Sender: FDA-Public Use
  Company Number: US-MERCK-0605USA01957

PATIENT
  Age: 69 Year
  Sex: Male

DRUGS (6)
  1. DECADRON [Suspect]
     Indication: GLIOBLASTOMA
     Route: 048
  2. DECADRON [Suspect]
     Route: 048
  3. PHENYTOIN [Concomitant]
     Route: 065
  4. CLOTRIMAZOLE [Concomitant]
     Route: 048
  5. NIZATIDINE [Concomitant]
     Route: 065
  6. ANTINEOPLASTIC (UNSPECIFIED) [Concomitant]
     Route: 065

REACTIONS (13)
  - ASPARTATE AMINOTRANSFERASE INCREASED [None]
  - BLOOD ALBUMIN DECREASED [None]
  - BLOOD CALCIUM DECREASED [None]
  - BLOOD LACTATE DEHYDROGENASE INCREASED [None]
  - CHILLS [None]
  - DEATH [None]
  - DEEP VEIN THROMBOSIS [None]
  - FUNGAL INFECTION [None]
  - GENERAL PHYSICAL HEALTH DETERIORATION [None]
  - GLOBULINS INCREASED [None]
  - PNEUMOCYSTIS JIROVECI PNEUMONIA [None]
  - PULMONARY EMBOLISM [None]
  - PYREXIA [None]
